FAERS Safety Report 10692910 (Version 1)
Quarter: 2015Q1

REPORT INFORMATION
  Report Type: Spontaneous
  Country: US (occurrence: None)
  Receive Date: 20150105
  Receipt Date: 20150105
  Transmission Date: 20150720
  Serious: Yes (Other)
  Sender: FDA-Public Use
  Company Number: None

PATIENT
  Age: 6 Year
  Sex: Female
  Weight: 22.23 kg

DRUGS (1)
  1. SINGULAIR [Suspect]
     Active Substance: MONTELUKAST SODIUM

REACTIONS (6)
  - Anxiety [None]
  - Personality change [None]
  - Hallucination, auditory [None]
  - Paranoia [None]
  - Nightmare [None]
  - Psychiatric symptom [None]

NARRATIVE: CASE EVENT DATE: 20131118
